FAERS Safety Report 7793108-4 (Version None)
Quarter: 2011Q3

REPORT INFORMATION
  Report Type: 
  Country: None (occurrence: None)
  Receive Date: 20110930
  Receipt Date: 20110930
  Transmission Date: 20111222
  Serious: Yes (Other)
  Sender: FDA-Public Use
  Company Number: None

PATIENT
  Age: 55 Year
  Sex: Female
  Weight: 55.7924 kg

DRUGS (2)
  1. TRAMADOL HCL [Suspect]
     Indication: SCIATICA
     Dosage: 1 TABLET 4 TO 6 HOURS
  2. TRAMADOL HCL [Suspect]
     Indication: BACK PAIN
     Dosage: 1 TABLET 4 TO 6 HOURS

REACTIONS (2)
  - PRURITUS [None]
  - ABDOMINAL PAIN UPPER [None]
